FAERS Safety Report 9413711 (Version 1)
Quarter: 2013Q3

REPORT INFORMATION
  Report Type: Spontaneous
  Country: NL (occurrence: NL)
  Receive Date: 20130722
  Receipt Date: 20130722
  Transmission Date: 20140515
  Serious: Yes (Hospitalization)
  Sender: FDA-Public Use
  Company Number: US-ASTRAZENECA-2013SE52635

PATIENT
  Age: 69 Year
  Sex: Male

DRUGS (10)
  1. TICAGRELOR [Suspect]
  2. ACETYLSALICYLIC ACID [Suspect]
  3. ACENOCOUMAROL [Suspect]
  4. SAXAGLIPTIN [Suspect]
     Indication: TYPE 2 DIABETES MELLITUS
     Route: 048
     Dates: start: 20101213
  5. METFORMIN HCL [Suspect]
     Indication: TYPE 2 DIABETES MELLITUS
  6. AMARYL [Suspect]
     Indication: TYPE 2 DIABETES MELLITUS
  7. NOVORAPID [Suspect]
     Indication: TYPE 2 DIABETES MELLITUS
     Dates: end: 20110101
  8. NOVORAPID [Suspect]
     Indication: TYPE 2 DIABETES MELLITUS
     Dates: start: 20110102
  9. LEVEMIR [Suspect]
     Indication: TYPE 2 DIABETES MELLITUS
     Dates: end: 20110623
  10. LEVEMIR [Suspect]
     Indication: TYPE 2 DIABETES MELLITUS
     Dates: start: 20110624

REACTIONS (2)
  - Gastric antral vascular ectasia [Recovered/Resolved]
  - Gastric ulcer [Recovering/Resolving]
